FAERS Safety Report 8173085-7 (Version None)
Quarter: 2012Q1

REPORT INFORMATION
  Report Type: 
  Country: None (occurrence: None)
  Receive Date: 20120229
  Receipt Date: 20120227
  Transmission Date: 20120608
  Serious: Yes (Hospitalization)
  Sender: FDA-Public Use
  Company Number: JP-SANOFI-AVENTIS-2011SA059166

PATIENT
  Age: 85 Year
  Sex: Male

DRUGS (5)
  1. AMLODIPINE BESYLATE [Suspect]
     Route: 048
     Dates: end: 20110101
  2. LANSOPRAZOLE [Suspect]
     Route: 048
     Dates: end: 20110101
  3. DILTIAZEM HYDROCHLORIDE [Concomitant]
     Route: 048
  4. PLAVIX [Suspect]
     Route: 048
     Dates: end: 20110101
  5. ASPIRIN [Concomitant]
     Route: 048

REACTIONS (7)
  - COLITIS MICROSCOPIC [None]
  - RENAL FAILURE [None]
  - HAEMATOCHEZIA [None]
  - PYREXIA [None]
  - TENDERNESS [None]
  - DIARRHOEA [None]
  - ABDOMINAL PAIN [None]
